FAERS Safety Report 18417441 (Version 2)
Quarter: 2021Q1

REPORT INFORMATION
  Report Type: Spontaneous
  Country: US (occurrence: US)
  Receive Date: 20201022
  Receipt Date: 20210122
  Transmission Date: 20210419
  Serious: No
  Sender: FDA-Public Use
  Company Number: 2020SGN02675

PATIENT
  Sex: Female

DRUGS (5)
  1. TUKYSA [Suspect]
     Active Substance: TUCATINIB
     Indication: BREAST CANCER FEMALE
     Dosage: UNK
  2. CAPECITABINE. [Suspect]
     Active Substance: CAPECITABINE
     Indication: BREAST CANCER FEMALE
  3. TUKYSA [Suspect]
     Active Substance: TUCATINIB
     Dosage: 250 MG, BID
  4. CAPECITABINE. [Suspect]
     Active Substance: CAPECITABINE
     Dosage: 1500 MG, BID
  5. TUKYSA [Suspect]
     Active Substance: TUCATINIB
     Dosage: 150 MG, BID

REACTIONS (18)
  - Eating disorder [Unknown]
  - Fatigue [Unknown]
  - Stomatitis [Unknown]
  - Vomiting [Unknown]
  - Rhinorrhoea [Unknown]
  - Pain [Unknown]
  - Blister [Unknown]
  - Eye pruritus [Unknown]
  - Weight decreased [Unknown]
  - Hypersomnia [Unknown]
  - Decreased appetite [Recovering/Resolving]
  - Diarrhoea [Not Recovered/Not Resolved]
  - Blood potassium decreased [Unknown]
  - Palmar-plantar erythrodysaesthesia syndrome [Recovering/Resolving]
  - Inappropriate schedule of product administration [Unknown]
  - Discomfort [Unknown]
  - Nausea [Unknown]
  - Unevaluable event [Unknown]
